FAERS Safety Report 25433628 (Version 1)
Quarter: 2025Q2

REPORT INFORMATION
  Report Type: Spontaneous
  Country: US (occurrence: None)
  Receive Date: 20250612
  Receipt Date: 20250612
  Transmission Date: 20250716
  Serious: Yes (Other)
  Sender: FDA-CTU
  Company Number: None

PATIENT
  Age: 63 Year
  Sex: Male

DRUGS (11)
  1. MYCOPHENOLIC ACID [Suspect]
     Active Substance: MYCOPHENOLIC ACID
     Indication: Liver transplant
     Dosage: FREQUENCY : TWICE A DAY;?
     Route: 048
     Dates: start: 20250222
  2. TACROLIMUS [Concomitant]
     Active Substance: TACROLIMUS
  3. ITRACONAZOLE [Concomitant]
     Active Substance: ITRACONAZOLE
  4. melatonia [Concomitant]
  5. modanfinil [Concomitant]
  6. ONDANSETRON [Concomitant]
     Active Substance: ONDANSETRON
  7. FERROUS SULFATE [Concomitant]
     Active Substance: FERROUS SULFATE
  8. VITAMIN B1 [Concomitant]
     Active Substance: THIAMINE HYDROCHLORIDE
  9. URSODIOL [Concomitant]
     Active Substance: URSODIOL
  10. PREDNISONE [Concomitant]
     Active Substance: PREDNISONE
  11. MEGESTROL [Concomitant]
     Active Substance: MEGESTROL

REACTIONS (5)
  - Transplant [None]
  - Therapy interrupted [None]
  - Infection [None]
  - Dialysis [None]
  - Renal failure [None]
